FAERS Safety Report 14094756 (Version 3)
Quarter: 2017Q4

REPORT INFORMATION
  Report Type: Spontaneous
  Country: US (occurrence: US)
  Receive Date: 20171016
  Receipt Date: 20171031
  Transmission Date: 20180321
  Serious: No
  Sender: FDA-Public Use
  Company Number: US-MITSUBISHI TANABE PHARMA CORPORATION-MPE2017-0021286

PATIENT
  Sex: Female

DRUGS (8)
  1. RADICAVA [Suspect]
     Active Substance: EDARAVONE
     Indication: AMYOTROPHIC LATERAL SCLEROSIS
     Route: 041
     Dates: start: 20171007, end: 20171007
  2. RADICAVA [Suspect]
     Active Substance: EDARAVONE
     Route: 041
     Dates: start: 20170927, end: 20171004
  3. RADICAVA [Suspect]
     Active Substance: EDARAVONE
     Route: 041
     Dates: start: 20170829, end: 20170911
  4. TRAMADOL. [Concomitant]
     Active Substance: TRAMADOL
     Indication: MUSCLE SPASMS
  5. RILUTEK [Concomitant]
     Active Substance: RILUZOLE
     Indication: PRODUCT USED FOR UNKNOWN INDICATION
     Route: 048
  6. TRAMADOL. [Concomitant]
     Active Substance: TRAMADOL
     Indication: FATIGUE
  7. RADICAVA [Suspect]
     Active Substance: EDARAVONE
     Route: 041
     Dates: start: 20171006, end: 20171006
  8. RADICAVA [Suspect]
     Active Substance: EDARAVONE
     Route: 041
     Dates: start: 20171005, end: 20171005

REACTIONS (2)
  - Therapeutic response unexpected [Not Recovered/Not Resolved]
  - Energy increased [Not Recovered/Not Resolved]
